FAERS Safety Report 7238205-7 (Version None)
Quarter: 2011Q1

REPORT INFORMATION
  Report Type: 
  Country: None (occurrence: None)
  Receive Date: 20110121
  Receipt Date: 20110118
  Transmission Date: 20110831
  Serious: No
  Sender: FDA-Public Use
  Company Number: US-PFIZER INC-2011012359

PATIENT
  Sex: Female
  Weight: 54.4 kg

DRUGS (4)
  1. ZITHROMAX [Suspect]
     Indication: SINUSITIS
  2. ZITHROMAX [Suspect]
     Indication: UPPER RESPIRATORY TRACT INFECTION
     Dosage: 600 MG, 1X/DAY
     Route: 048
     Dates: start: 20110115
  3. ZITHROMAX [Suspect]
     Indication: COUGH
  4. XOPENEX [Concomitant]
     Indication: BRONCHIAL HYPERREACTIVITY
     Dosage: UNK

REACTIONS (3)
  - DIARRHOEA [None]
  - ASTHMA [None]
  - ABDOMINAL PAIN UPPER [None]
